FAERS Safety Report 5162333-3 (Version None)
Quarter: 2006Q4

REPORT INFORMATION
  Report Type: 
  Country: None (occurrence: None)
  Receive Date: 20061130
  Receipt Date: 20061016
  Transmission Date: 20070319
  Serious: Yes (Other)
  Sender: FDA-Public Use
  Company Number: PHBS2006JP16181

PATIENT
  Age: 48 Year
  Sex: Female
  Weight: 48 kg

DRUGS (3)
  1. PREDNISOLONE [Suspect]
     Indication: NEPHROTIC SYNDROME
     Dosage: 25 MG/D
     Route: 048
     Dates: start: 20051026
  2. PREDNISOLONE [Suspect]
     Route: 048
  3. NEORAL [Suspect]
     Indication: NEPHROTIC SYNDROME
     Dosage: 75 MG/D
     Route: 048
     Dates: start: 20060927

REACTIONS (4)
  - CHORIORETINOPATHY [None]
  - HYPOAESTHESIA [None]
  - INTERVERTEBRAL DISC PROTRUSION [None]
  - VISUAL DISTURBANCE [None]
